FAERS Safety Report 13668325 (Version 1)
Quarter: 2017Q2

REPORT INFORMATION
  Report Type: Spontaneous
  Country: FR (occurrence: FR)
  Receive Date: 20170620
  Receipt Date: 20170620
  Transmission Date: 20170830
  Serious: Yes (Disabling)
  Sender: FDA-Public Use
  Company Number: FR-ACCORD-052796

PATIENT
  Age: 59 Year
  Sex: Male

DRUGS (2)
  1. FLUOROURACIL ACCORD [Suspect]
     Active Substance: FLUOROURACIL
     Indication: GASTRIC CANCER
     Dosage: 7550 MG ONCE IN ONE CYCLE
     Route: 042
     Dates: start: 20161123, end: 20170426
  2. CISPLATIN MYLAN [Suspect]
     Active Substance: CISPLATIN
     Indication: GASTRIC CANCER
     Dosage: 151 MG ONCE IN ONE CYCLE
     Route: 042
     Dates: start: 20161123, end: 20170426

REACTIONS (1)
  - Renal failure [Recovered/Resolved with Sequelae]
